FAERS Safety Report 23230671 (Version 1)
Quarter: 2023Q4

REPORT INFORMATION
  Report Type: Spontaneous
  Country: US (occurrence: None)
  Receive Date: 20231123
  Receipt Date: 20231123
  Transmission Date: 20240110
  Serious: Yes (Disabling)
  Sender: FDA-Public Use
  Company Number: None

PATIENT
  Age: 44 Year
  Sex: Female
  Weight: 79.2 kg

DRUGS (2)
  1. NORETHINDRONE ACETATE [Suspect]
     Active Substance: NORETHINDRONE ACETATE
     Indication: Heavy menstrual bleeding
     Dosage: 1 TABLET AT BEDTIME ORAL?
     Route: 048
     Dates: start: 20231122
  2. CLONAZEPAM [Concomitant]
     Active Substance: CLONAZEPAM

REACTIONS (2)
  - Palpitations [None]
  - Panic attack [None]

NARRATIVE: CASE EVENT DATE: 20231122
